FAERS Safety Report 15799821 (Version 1)
Quarter: 2019Q1

REPORT INFORMATION
  Report Type: Spontaneous
  Country: US (occurrence: US)
  Receive Date: 20190108
  Receipt Date: 20190108
  Transmission Date: 20190417
  Serious: No
  Sender: FDA-Public Use
  Company Number: US-SA-2019SA004257

PATIENT
  Age: 10 Year
  Sex: Female
  Weight: 28.12 kg

DRUGS (11)
  1. SODIUM CHLORIDE. [Concomitant]
     Active Substance: SODIUM CHLORIDE
     Indication: FLUSHING
     Dosage: 0.9 %
     Route: 042
     Dates: start: 20181220
  2. NORMAL SALINE [Concomitant]
     Active Substance: SODIUM CHLORIDE
     Indication: MEDICATION DILUTION
     Dosage: 0.9 %
     Route: 042
     Dates: start: 20181220
  3. ZYRTEC [Concomitant]
     Active Substance: CETIRIZINE HYDROCHLORIDE
     Dosage: 10 MG, QD
     Route: 048
     Dates: start: 20180604
  4. AZITHROMYCIN ANHYDROUS. [Concomitant]
     Active Substance: AZITHROMYCIN ANHYDROUS
     Dosage: 1 DF, EVERY MWF
     Dates: start: 20180604
  5. CEREZYME [Suspect]
     Active Substance: IMIGLUCERASE
     Indication: FABRY^S DISEASE
     Dosage: 2000 U, QW
     Route: 041
     Dates: start: 20180605
  6. STERILE WATER [Concomitant]
     Active Substance: WATER
     Indication: UNEVALUABLE THERAPY
     Dosage: 1 DF (EACH)
     Route: 042
     Dates: start: 20181220
  7. LMX [LIDOCAINE] [Concomitant]
     Indication: PREMEDICATION
     Dosage: 4 % (TOP PRIOR TO TREATMENT)
     Dates: start: 20181220
  8. PROAIR HFA [Concomitant]
     Active Substance: ALBUTEROL SULFATE
     Dosage: 2PUFFS, BID
     Dates: start: 20180604
  9. EPINEPHRINE. [Concomitant]
     Active Substance: EPINEPHRINE
     Indication: ANAPHYLACTIC REACTION
     Dosage: 0.15 MG, PRN
     Route: 030
     Dates: start: 20181220
  10. HEPARIN [Concomitant]
     Active Substance: HEPARIN SODIUM
     Indication: FLUSHING
     Dosage: 100 UN/ML, UNK
     Route: 042
     Dates: start: 20181220
  11. ADVAIR HFA [Concomitant]
     Active Substance: FLUTICASONE PROPIONATE\SALMETEROL XINAFOATE
     Dosage: 2PUFFS, BID
     Dates: start: 20180604

REACTIONS (1)
  - Influenza [Not Recovered/Not Resolved]
